FAERS Safety Report 5277960-2 (Version None)
Quarter: 2007Q1

REPORT INFORMATION
  Report Type: 
  Country: None (occurrence: None)
  Receive Date: 20070321
  Receipt Date: 20070308
  Transmission Date: 20070707
  Serious: Yes (Life-Threatening, Hospitalization)
  Sender: FDA-Public Use
  Company Number: T200700268

PATIENT
  Age: 77 Year
  Sex: Female
  Weight: 43 kg

DRUGS (1)
  1. OPTIRAY (IOVERSOL) SOLUTION FOR INJECTION, 320 [Suspect]
     Indication: COMPUTERISED TOMOGRAM ABDOMEN
     Dosage: 60 ML, SINGLE, INTRAVENOUS
     Route: 042
     Dates: start: 20070219, end: 20070219

REACTIONS (1)
  - ANAPHYLACTIC SHOCK [None]
